FAERS Safety Report 4328503-9 (Version None)
Quarter: 2004Q1

REPORT INFORMATION
  Report Type: 
  Country: None (occurrence: None)
  Receive Date: 20040331
  Receipt Date: 20040218
  Transmission Date: 20041129
  Serious: Yes (Life-Threatening, Hospitalization, Disabling, Other)
  Sender: FDA-Public Use
  Company Number: US-MERCK-0402USA01401

PATIENT
  Age: 38 Year
  Sex: Male
  Weight: 73 kg

DRUGS (4)
  1. BIAXIN [Concomitant]
     Indication: MYCOPLASMA INFECTION
     Route: 065
     Dates: start: 20031101, end: 20040101
  2. ADVAIR DISKUS 100/50 [Concomitant]
     Indication: ASTHMA
     Route: 065
     Dates: end: 20040101
  3. ADVAIR DISKUS 100/50 [Concomitant]
     Route: 065
     Dates: start: 20040101
  4. SINGULAIR [Suspect]
     Indication: ASTHMA
     Route: 048
     Dates: start: 20040113, end: 20040206

REACTIONS (11)
  - ALLERGIC GRANULOMATOUS ANGIITIS [None]
  - ATELECTASIS [None]
  - CHRONIC SINUSITIS [None]
  - ELECTROCARDIOGRAM ST SEGMENT DEPRESSION [None]
  - HAEMATURIA [None]
  - INTRACRANIAL ANEURYSM [None]
  - MYOCARDIAL FIBROSIS [None]
  - NEPHROLITHIASIS [None]
  - QRS AXIS ABNORMAL [None]
  - VENTRICULAR HYPERTROPHY [None]
  - VITREOUS FLOATERS [None]
